FAERS Safety Report 10101204 (Version 2)
Quarter: 2014Q2

REPORT INFORMATION
  Report Type: Spontaneous
  Country: US (occurrence: US)
  Receive Date: 20140424
  Receipt Date: 20140424
  Transmission Date: 20141212
  Serious: No
  Sender: FDA-Public Use
  Company Number: US-DRREDDYS-USA/USA/13/0034923

PATIENT
  Age: 71 Year
  Sex: Male
  Weight: 61.2 kg

DRUGS (6)
  1. FINASTERIDE 5 MG [Suspect]
     Indication: BENIGN PROSTATIC HYPERPLASIA
     Route: 065
     Dates: start: 201201, end: 20130910
  2. PANTOPRAZOLE SODIUM DR TABLETS 20MG + 40MG [Concomitant]
     Indication: PRODUCT USED FOR UNKNOWN INDICATION
     Route: 065
     Dates: end: 201306
  3. PANTOPRAZOLE SODIUM DR TABLETS 20MG + 40MG [Concomitant]
     Route: 065
     Dates: end: 201306
  4. NEXIUM [Concomitant]
     Indication: PRODUCT USED FOR UNKNOWN INDICATION
     Route: 065
     Dates: start: 2011
  5. TERAZOSIN [Concomitant]
     Indication: PRODUCT USED FOR UNKNOWN INDICATION
     Route: 065
     Dates: start: 1995
  6. TERAZOSIN [Concomitant]
     Route: 065
     Dates: start: 1995

REACTIONS (1)
  - Quality of life decreased [Unknown]
